FAERS Safety Report 22259856 (Version 2)
Quarter: 2023Q2

REPORT INFORMATION
  Report Type: Spontaneous
  Country: AU (occurrence: AU)
  Receive Date: 20230427
  Receipt Date: 20230619
  Transmission Date: 20230721
  Serious: No
  Sender: FDA-Public Use
  Company Number: AU-EXELTIS PHARMACEUTICAL HOLDING, S.L.-2304AU02404

PATIENT
  Sex: Female

DRUGS (1)
  1. DROSPIRENONE [Suspect]
     Active Substance: DROSPIRENONE
     Indication: Oral contraception
     Route: 048

REACTIONS (1)
  - Tachycardia [Recovered/Resolved]
